FAERS Safety Report 8241462-1 (Version None)
Quarter: 2012Q1

REPORT INFORMATION
  Report Type: 
  Country: None (occurrence: None)
  Receive Date: 20120328
  Receipt Date: 20120316
  Transmission Date: 20120608
  Serious: Yes (Other)
  Sender: FDA-Public Use
  Company Number: US-ELI_LILLY_AND_COMPANY-US201201007583

PATIENT
  Age: 81 Year
  Sex: Female
  Weight: 117.1 kg

DRUGS (18)
  1. THYROID THERAPY [Concomitant]
     Dosage: UNK, UNKNOWN
  2. LOVAZA [Concomitant]
     Dosage: UNK, UNKNOWN
  3. BIOTIN [Concomitant]
     Dosage: UNK, UNKNOWN
  4. CYMBALTA [Suspect]
     Dosage: 60 MG, QD
     Route: 048
     Dates: start: 20111229, end: 20120130
  5. SELENIUM [Concomitant]
     Dosage: UNK, UNKNOWN
  6. CALCIUM CARBONATE [Concomitant]
     Dosage: UNK, UNKNOWN
  7. VITAMIN B COMPLEX CAP [Concomitant]
     Dosage: UNK, UNKNOWN
  8. MELATONIN [Concomitant]
     Dosage: UNK, UNKNOWN
  9. ESTRADERM [Concomitant]
     Dosage: UNK, UNKNOWN
  10. ZOLPIDEM [Concomitant]
     Dosage: UNK, UNKNOWN
  11. CYMBALTA [Suspect]
     Indication: FIBROMYALGIA
     Dosage: 30 MG, QD
     Route: 048
     Dates: start: 20111222, end: 20111229
  12. ASCORBIC ACID [Concomitant]
     Dosage: UNK, UNKNOWN
  13. VITAMIN E                            /001105/ [Concomitant]
     Dosage: UNK, UNKNOWN
  14. FOLIC ACID [Concomitant]
     Dosage: UNK, UNKNOWN
  15. MAGNESIUM [Concomitant]
     Dosage: UNK, UNKNOWN
  16. DARIFENACIN [Concomitant]
     Dosage: UNK, UNKNOWN
  17. ASPIRIN [Concomitant]
     Dosage: UNK, UNKNOWN
  18. VITAMIN D [Concomitant]
     Dosage: UNK, UNKNOWN

REACTIONS (8)
  - APHASIA [None]
  - NAUSEA [None]
  - DEPRESSION [None]
  - MALAISE [None]
  - VISUAL ACUITY REDUCED [None]
  - COLITIS ULCERATIVE [None]
  - INTESTINAL POLYP HAEMORRHAGE [None]
  - DECREASED APPETITE [None]
